FAERS Safety Report 6510568 (Version 4)
Quarter: 2015Q4

REPORT INFORMATION
  Report Type: Spontaneous
  Country: JP (occurrence: JP)
  Receive Date: 20071220
  Receipt Date: 20151012
  Transmission Date: 20160305
  Serious: Yes (Hospitalization)
  Sender: FDA-Public Use
  Company Number: PHBS2007JP18366

PATIENT
  Age: 33 Year
  Sex: Male

DRUGS (3)
  1. VOLTAREN SUP [Suspect]
     Active Substance: DICLOFENAC SODIUM
     Indication: INFLUENZA LIKE ILLNESS
     Dosage: 50 MG, QD
     Route: 054
     Dates: start: 20070130, end: 20070202
  2. MUCODYNE [Concomitant]
     Active Substance: CARBOCYSTEINE
     Indication: NASOPHARYNGITIS
     Dosage: 1500 MG, UNK
     Route: 048
     Dates: start: 20070130, end: 20070202
  3. MEDICON                            /02167701/ [Concomitant]
     Active Substance: DEXTROMETHORPHAN HYDROBROMIDE\POTASSIUM CREOSOTESULFONATE
     Indication: RHINORRHOEA
     Route: 065

REACTIONS (15)
  - Eye pain [Recovered/Resolved]
  - Enanthema [Unknown]
  - Cheilitis [Recovered/Resolved]
  - Corneal erosion [Recovering/Resolving]
  - Mycoplasma infection [Unknown]
  - Oropharyngeal pain [Recovering/Resolving]
  - Rash [Unknown]
  - Mycoplasma test positive [Recovering/Resolving]
  - Dry eye [Unknown]
  - Pyrexia [Recovered/Resolved]
  - Conjunctival hyperaemia [Unknown]
  - Stevens-Johnson syndrome [Recovered/Resolved with Sequelae]
  - Oral mucosa erosion [Recovering/Resolving]
  - Dysphagia [Unknown]
  - Lymphocyte stimulation test positive [Recovering/Resolving]

NARRATIVE: CASE EVENT DATE: 20070131
